FAERS Safety Report 4263775-0 (Version None)
Quarter: 2004Q1

REPORT INFORMATION
  Report Type: 
  Country: None (occurrence: None)
  Receive Date: 20040102
  Receipt Date: 20031222
  Transmission Date: 20041129
  Serious: Yes (Hospitalization)
  Sender: FDA-Public Use
  Company Number: USA030845403

PATIENT
  Age: 62 Year
  Sex: Female
  Weight: 45 kg

DRUGS (1)
  1. GEMZAR [Suspect]
     Indication: MESOTHELIOMA
     Dosage: 1200 MG
     Dates: start: 20030513, end: 20030812

REACTIONS (1)
  - PNEUMONIA [None]
